FAERS Safety Report 8723094 (Version 2)
Quarter: 2012Q4

REPORT INFORMATION
  Report Type: Report from Study
  Country: CA (occurrence: CA)
  Receive Date: 20120814
  Receipt Date: 20121012
  Transmission Date: 20130627
  Serious: Yes (Other)
  Sender: FDA-Public Use
  Company Number: CA-ABBOTT-12P-028-0967291-00

PATIENT
  Age: 74 None
  Sex: Male
  Weight: 80 kg

DRUGS (1)
  1. HUMIRA [Suspect]
     Indication: PSORIASIS
     Route: 058
     Dates: start: 20120522, end: 20120529

REACTIONS (6)
  - Blindness unilateral [Recovering/Resolving]
  - Blindness [Recovering/Resolving]
  - Age-related macular degeneration [Recovering/Resolving]
  - Influenza [Unknown]
  - Age-related macular degeneration [Recovering/Resolving]
  - Maculopathy [Unknown]
